FAERS Safety Report 14752403 (Version 1)
Quarter: 2018Q2

REPORT INFORMATION
  Report Type: Other
  Country: CA (occurrence: CA)
  Receive Date: 20180412
  Receipt Date: 20180412
  Transmission Date: 20180711
  Serious: Yes (Other)
  Sender: FDA-Public Use
  Company Number: CA-GLENMARK PHARMACEUTICALS-2018GMK034270

PATIENT

DRUGS (1)
  1. GABAPENTIN. [Suspect]
     Active Substance: GABAPENTIN
     Indication: NEURALGIA
     Dosage: 300 MG, TID
     Route: 048

REACTIONS (6)
  - Somnolence [Unknown]
  - Initial insomnia [Unknown]
  - Lethargy [Unknown]
  - Product use in unapproved indication [Unknown]
  - Disturbance in attention [Unknown]
  - Insomnia [Unknown]
